FAERS Safety Report 20510278 (Version 1)
Quarter: 2022Q1

REPORT INFORMATION
  Report Type: Report from Study
  Country: US (occurrence: US)
  Receive Date: 20220224
  Receipt Date: 20220224
  Transmission Date: 20220424
  Serious: Yes (Death, Other)
  Sender: FDA-Public Use
  Company Number: US-ACADIA PHARMACEUTICALS INC.-ACA-2022-PIM-000353

PATIENT
  Sex: Female

DRUGS (25)
  1. NUPLAZID [Suspect]
     Active Substance: PIMAVANSERIN TARTRATE
     Indication: Parkinson^s disease
     Dosage: 34 MILLIGRAM, QD
     Route: 048
     Dates: start: 202106
  2. NUPLAZID [Suspect]
     Active Substance: PIMAVANSERIN TARTRATE
     Indication: Hallucination
  3. NUPLAZID [Suspect]
     Active Substance: PIMAVANSERIN TARTRATE
     Indication: Delusion
  4. CHOLECALCIFEROL [Concomitant]
     Active Substance: CHOLECALCIFEROL
  5. VITAMIN C [Concomitant]
     Active Substance: ASCORBIC ACID
  6. TRAZODONE [Concomitant]
     Active Substance: TRAZODONE HYDROCHLORIDE
  7. RANOLAZINE [Concomitant]
     Active Substance: RANOLAZINE
  8. ROPINIROLE [Concomitant]
     Active Substance: ROPINIROLE
  9. QUETIAPINE [Concomitant]
     Active Substance: QUETIAPINE
  10. PANTOPRAZOLE [Concomitant]
     Active Substance: PANTOPRAZOLE
  11. OXYBUTYNIN [Concomitant]
     Active Substance: OXYBUTYNIN
  12. NORCO [Concomitant]
     Active Substance: ACETAMINOPHEN\HYDROCODONE BITARTRATE
  13. MYRBETRIQ [Concomitant]
     Active Substance: MIRABEGRON
  14. METOPROLOL [Concomitant]
     Active Substance: METOPROLOL
  15. METHYLPREDNISOLONE [Concomitant]
     Active Substance: METHYLPREDNISOLONE
  16. MELOXICAM [Concomitant]
     Active Substance: MELOXICAM
  17. MELATONIN [Concomitant]
     Active Substance: MELATONIN
  18. MAGNESIUM [Concomitant]
     Active Substance: MAGNESIUM
  19. LOSARTAN [Concomitant]
     Active Substance: LOSARTAN
  20. LATANOPROST [Concomitant]
     Active Substance: LATANOPROST
  21. FENOFIBRATE [Concomitant]
     Active Substance: FENOFIBRATE
  22. DULOXETINE [Concomitant]
     Active Substance: DULOXETINE
  23. CARBIDOPA\LEVODOPA [Concomitant]
     Active Substance: CARBIDOPA\LEVODOPA
  24. ASPIRIN [Concomitant]
     Active Substance: ASPIRIN
  25. AMLODIPINE [Concomitant]
     Active Substance: AMLODIPINE BESYLATE

REACTIONS (1)
  - Pneumonia [Recovered/Resolved]
